FAERS Safety Report 9894794 (Version 1)
Quarter: 2014Q1

REPORT INFORMATION
  Report Type: Spontaneous
  Country: TR (occurrence: TR)
  Receive Date: 20140213
  Receipt Date: 20140213
  Transmission Date: 20141002
  Serious: Yes (Death, Other)
  Sender: FDA-Public Use
  Company Number: PHHY2014TR015185

PATIENT
  Age: 66 Year
  Sex: Male

DRUGS (4)
  1. 5-FLUOROURACIL [Suspect]
     Indication: COLON CANCER METASTATIC
     Dosage: 400 MG/M2, UNK
  2. 5-FLUOROURACIL [Suspect]
     Dosage: 600 MG/M2, UNK
  3. LEUCOVORIN CALCIUM [Suspect]
     Indication: COLON CANCER METASTATIC
     Dosage: 200 MG/M2, UNK
  4. IRINOTECAN [Suspect]
     Indication: COLON CANCER METASTATIC
     Dosage: 180 MG/M2, UNK

REACTIONS (7)
  - Tumour lysis syndrome [Fatal]
  - Cardiac arrest [Fatal]
  - Hyperuricaemia [Fatal]
  - Hyperphosphataemia [Fatal]
  - Hypocalcaemia [Fatal]
  - Metabolic acidosis [Fatal]
  - Renal failure acute [Unknown]
